FAERS Safety Report 9384422 (Version 2)
Quarter: 2013Q4

REPORT INFORMATION
  Report Type: Spontaneous
  Country: RS (occurrence: RS)
  Receive Date: 20130705
  Receipt Date: 20131127
  Transmission Date: 20140711
  Serious: Yes (Other)
  Sender: FDA-Public Use
  Company Number: PHHY2013RS070081

PATIENT
  Age: 28 Year
  Sex: Male
  Weight: 105 kg

DRUGS (3)
  1. LEPONEX [Suspect]
     Indication: PSYCHOTIC DISORDER
     Dosage: 25 MG, BID
     Route: 048
     Dates: start: 20100320, end: 20130330
  2. EFTIL [Concomitant]
     Indication: PSYCHOTIC DISORDER
     Dosage: 500 MG (ONE TABLET DAILY, 2 HALF TABLET PER DAY)
     Route: 048
     Dates: start: 2012
  3. ANAFRANIL [Concomitant]
     Indication: PSYCHOTIC DISORDER
     Dosage: 25 MG, QD
     Route: 048
     Dates: start: 2012

REACTIONS (1)
  - Thinking abnormal [Recovered/Resolved]
